FAERS Safety Report 5556778-7 (Version None)
Quarter: 2007Q4

REPORT INFORMATION
  Report Type: 
  Country: None (occurrence: None)
  Receive Date: 20071130
  Receipt Date: 20070719
  Transmission Date: 20080405
  Serious: No
  Sender: FDA-Public Use
  Company Number: 2007PV028327

PATIENT
  Age: 53 Year
  Sex: Female
  Weight: 63.5 kg

DRUGS (11)
  1. EXENATIDE(EXENATIDE) PEN,DISPOSABLE [Suspect]
     Indication: TYPE 2 DIABETES MELLITUS
     Dosage: 5 UG, 2/D, SUBCUTANEOUS, 10 UG, 2/D, SUBCUTANEOUS
     Route: 058
     Dates: start: 20061227, end: 20070101
  2. EXENATIDE(EXENATIDE) PEN,DISPOSABLE [Suspect]
     Indication: TYPE 2 DIABETES MELLITUS
     Dosage: 5 UG, 2/D, SUBCUTANEOUS, 10 UG, 2/D, SUBCUTANEOUS
     Route: 058
     Dates: start: 20070101, end: 20070201
  3. EXENATIDE(EXENATIDE) PEN,DISPOSABLE [Suspect]
     Indication: TYPE 2 DIABETES MELLITUS
     Dosage: 5 UG, 2/D, SUBCUTANEOUS, 10 UG, 2/D, SUBCUTANEOUS
     Route: 058
     Dates: start: 20070320
  4. BYETTA [Suspect]
  5. BYETTA [Suspect]
  6. GLUCOPHAGE [Concomitant]
  7. GLYBURIDE [Concomitant]
  8. AMARYL [Concomitant]
  9. SYNTHROID [Concomitant]
  10. VITAMIN D [Concomitant]
  11. ASPIRIN [Concomitant]

REACTIONS (14)
  - BLOOD GLUCOSE DECREASED [None]
  - CHILLS [None]
  - DIZZINESS [None]
  - EARLY SATIETY [None]
  - INJECTION SITE HAEMORRHAGE [None]
  - INJECTION SITE PAIN [None]
  - INJECTION SITE RASH [None]
  - MALAISE [None]
  - NAUSEA [None]
  - SOMNOLENCE [None]
  - TREMOR [None]
  - VISION BLURRED [None]
  - VOMITING [None]
  - WEIGHT DECREASED [None]
